FAERS Safety Report 9739402 (Version 1)
Quarter: 2013Q4

REPORT INFORMATION
  Report Type: Spontaneous
  Country: US (occurrence: US)
  Receive Date: 20131209
  Receipt Date: 20131209
  Transmission Date: 20140711
  Serious: No
  Sender: FDA-Public Use
  Company Number: US-BRISTOL-MYERS SQUIBB COMPANY-17312893

PATIENT
  Age: 66 Year
  Sex: Female

DRUGS (5)
  1. IXEMPRA [Suspect]
     Dosage: 2 TREATMENTS
  2. VENLAFAXINE HCL [Concomitant]
  3. GABAPENTIN [Concomitant]
  4. OMEPRAZOLE [Concomitant]
  5. VITAMIN B [Concomitant]

REACTIONS (2)
  - Muscle spasms [Unknown]
  - Fatigue [Unknown]
